FAERS Safety Report 9922193 (Version 1)
Quarter: 2014Q1

REPORT INFORMATION
  Report Type: Spontaneous
  Country: US (occurrence: US)
  Receive Date: 20140225
  Receipt Date: 20140225
  Transmission Date: 20141002
  Serious: Yes (Other)
  Sender: FDA-Public Use
  Company Number: US-ACTAVIS-2014-02960

PATIENT
  Age: 49 Year
  Sex: Male

DRUGS (1)
  1. MINOCYCLINE HCL (WATSON LABORATORIES) [Suspect]
     Indication: ACNE
     Dosage: 100 MG, BID
     Route: 065

REACTIONS (1)
  - Bone hyperpigmentation [Unknown]
